FAERS Safety Report 24357013 (Version 1)
Quarter: 2024Q3

REPORT INFORMATION
  Report Type: Spontaneous
  Country: US (occurrence: None)
  Receive Date: 20240924
  Receipt Date: 20240924
  Transmission Date: 20241016
  Serious: Yes (Hospitalization)
  Sender: Public
  Company Number: None

PATIENT
  Sex: Female
  Weight: 96.9 kg

DRUGS (2)
  1. CARBOPLATIN [Suspect]
     Active Substance: CARBOPLATIN
  2. GEMCITABINE HYDROCHLORIDE [Concomitant]
     Active Substance: GEMCITABINE HYDROCHLORIDE

REACTIONS (12)
  - Arthropod bite [None]
  - Limb injury [None]
  - Gait inability [None]
  - Wound necrosis [None]
  - Paraesthesia [None]
  - Hypoaesthesia [None]
  - Haemoglobin decreased [None]
  - Red blood cell transfusion [None]
  - Hypothyroidism [None]
  - Cellulitis [None]
  - Arthralgia [None]
  - Platelet count decreased [None]

NARRATIVE: CASE EVENT DATE: 20230701
